FAERS Safety Report 7323540-4 (Version None)
Quarter: 2011Q1

REPORT INFORMATION
  Report Type: 
  Country: None (occurrence: None)
  Receive Date: 20110301
  Receipt Date: 20110215
  Transmission Date: 20110831
  Serious: Yes (Hospitalization)
  Sender: FDA-Public Use
  Company Number: BE-NAPPMUNDI-USA-2011-0064317

PATIENT
  Age: 40 Year
  Sex: Male

DRUGS (12)
  1. MORPHINE SULFATE [Suspect]
     Indication: PAIN
     Dosage: 10 MG, DAILY
     Dates: start: 20100819
  2. DURAGESIC-100 [Suspect]
     Indication: PAIN
     Dosage: 50 MCG, DAILY
     Route: 062
     Dates: start: 20100201, end: 20100901
  3. MACROGOL [Concomitant]
     Indication: PRODUCT USED FOR UNKNOWN INDICATION
  4. DOMPERIDONE [Concomitant]
     Indication: PRODUCT USED FOR UNKNOWN INDICATION
  5. ALIZAPRIDE [Concomitant]
     Indication: PRODUCT USED FOR UNKNOWN INDICATION
  6. ALPRAZOLAM [Concomitant]
     Indication: PRODUCT USED FOR UNKNOWN INDICATION
  7. TRAZOLAN [Concomitant]
     Indication: PRODUCT USED FOR UNKNOWN INDICATION
  8. TRAMADOL (SIMILAR TO NDA 21-745) [Suspect]
     Indication: PAIN
     Dosage: 100 MG, DAILY
     Dates: start: 20100823
  9. ZANTAC [Concomitant]
     Indication: PRODUCT USED FOR UNKNOWN INDICATION
  10. PRIMPERAN TAB [Concomitant]
     Indication: PRODUCT USED FOR UNKNOWN INDICATION
  11. OMEPRAZOLE [Concomitant]
     Indication: PRODUCT USED FOR UNKNOWN INDICATION
  12. SUTENT [Suspect]
     Indication: ANGIOSARCOMA
     Dosage: 50 MG, DAILY
     Route: 048
     Dates: start: 20100712

REACTIONS (6)
  - VOMITING [None]
  - OVERDOSE [None]
  - ANXIETY [None]
  - NAUSEA [None]
  - AGITATION [None]
  - CONSTIPATION [None]
